FAERS Safety Report 6280619-6 (Version None)
Quarter: 2009Q3

REPORT INFORMATION
  Report Type: 
  Country: None (occurrence: None)
  Receive Date: 20090724
  Receipt Date: 20081003
  Transmission Date: 20100115
  Serious: No
  Sender: FDA-Public Use
  Company Number: A0751465A

PATIENT
  Sex: Female

DRUGS (1)
  1. AVANDIA [Suspect]

REACTIONS (4)
  - BACK DISORDER [None]
  - CARDIAC DISORDER [None]
  - OEDEMA [None]
  - WEIGHT INCREASED [None]
